FAERS Safety Report 7988653-2 (Version None)
Quarter: 2011Q4

REPORT INFORMATION
  Report Type: 
  Country: None (occurrence: None)
  Receive Date: 20111218
  Receipt Date: 20111129
  Transmission Date: 20120403
  Serious: No
  Sender: FDA-Public Use
  Company Number: US-ROXANE LABORATORIES, INC.-2011-RO-01459RO

PATIENT
  Sex: Male

DRUGS (3)
  1. XANAX [Concomitant]
  2. PHENERGAN [Concomitant]
  3. BUPRENORPHINE HCL [Suspect]
     Indication: DRUG WITHDRAWAL MAINTENANCE THERAPY
     Dosage: 16 MG
     Route: 060
     Dates: start: 20111009

REACTIONS (4)
  - ORAL DISCOMFORT [None]
  - ORAL MUCOSAL EXFOLIATION [None]
  - PRODUCT SOLUBILITY ABNORMAL [None]
  - HYPOAESTHESIA ORAL [None]
